FAERS Safety Report 9305141 (Version 3)
Quarter: 2014Q4

REPORT INFORMATION
  Report Type: Report from Study
  Country: BR (occurrence: BR)
  Receive Date: 20130523
  Receipt Date: 20141105
  Transmission Date: 20150529
  Serious: Yes (Hospitalization, Other)
  Sender: FDA-Public Use
  Company Number: PHHY2013BR051380

PATIENT
  Age: 90 Year
  Sex: Male
  Weight: 70 kg

DRUGS (3)
  1. LAMITOR [Concomitant]
     Active Substance: LAMOTRIGINE
     Indication: MEMORY IMPAIRMENT
     Dosage: 125 MG, AT MORNING AND AT NIGHT
     Route: 048
  2. DIOVAN HCT [Suspect]
     Active Substance: HYDROCHLOROTHIAZIDE\VALSARTAN
     Indication: HYPERTENSION
     Dosage: 1 DF(80/12.5), DAILY
     Route: 048
     Dates: end: 20130514
  3. SIMVASTATIN. [Concomitant]
     Active Substance: SIMVASTATIN
     Indication: PRODUCT USED FOR UNKNOWN INDICATION
     Dosage: 20 MG, DAILY
     Route: 048

REACTIONS (9)
  - Parkinson^s disease [Recovering/Resolving]
  - Petit mal epilepsy [Recovering/Resolving]
  - Drooling [Recovering/Resolving]
  - Blood pressure decreased [Recovering/Resolving]
  - Haemorrhagic erosive gastritis [Recovered/Resolved]
  - Aphasia [Recovering/Resolving]
  - Hypotonia [Recovering/Resolving]
  - Fall [Recovering/Resolving]
  - Orthostatic hypotension [Recovering/Resolving]

NARRATIVE: CASE EVENT DATE: 201212
